FAERS Safety Report 6643891-6 (Version None)
Quarter: 2010Q1

REPORT INFORMATION
  Report Type: 
  Country: None (occurrence: None)
  Receive Date: 20100322
  Receipt Date: 20100309
  Transmission Date: 20100710
  Serious: Yes (Other)
  Sender: FDA-Public Use
  Company Number: SI-ELI_LILLY_AND_COMPANY-SI201003003295

PATIENT
  Sex: Female
  Weight: 60 kg

DRUGS (6)
  1. FORTEO [Suspect]
     Indication: OSTEOPOROSIS
     Dosage: 20 UG, DAILY (1/D)
     Route: 058
  2. DURAGESIC-100 [Concomitant]
     Dosage: 75 MG, DAILY (1/D)
     Route: 065
  3. CYMBALTA [Concomitant]
     Dosage: 30 MG, DAILY (1/D)
     Route: 065
  4. SINVACOR [Concomitant]
     Dosage: 20 MG, DAILY (1/D)
     Route: 065
  5. IRBESARTAN [Concomitant]
     Dosage: 150 D/F, DAILY (1/D)
     Route: 065
  6. PLIVIT D3 [Concomitant]
     Dosage: UNK, DAILY (1/D)
     Route: 065

REACTIONS (1)
  - DEMENTIA [None]
